FAERS Safety Report 10632275 (Version 1)
Quarter: 2014Q4

REPORT INFORMATION
  Report Type: Spontaneous
  Country: US (occurrence: US)
  Receive Date: 20141205
  Receipt Date: 20141205
  Transmission Date: 20150529
  Serious: No
  Sender: FDA-Public Use
  Company Number: US-BRISTOL-MYERS SQUIBB COMPANY-21278924

PATIENT
  Sex: Female
  Weight: 56 kg

DRUGS (1)
  1. ABILIFY [Suspect]
     Active Substance: ARIPIPRAZOLE
     Indication: PRODUCT USED FOR UNKNOWN INDICATION
     Dosage: INCREASED DOSE TO 5 MG FOR 2 WEEKS.    INTERRUP ON:25JUL14
     Route: 048
     Dates: end: 20140725

REACTIONS (6)
  - Fear [Not Recovered/Not Resolved]
  - Thinking abnormal [Recovered/Resolved]
  - Anxiety [Not Recovered/Not Resolved]
  - Panic attack [Not Recovered/Not Resolved]
  - Akathisia [Not Recovered/Not Resolved]
  - Vision blurred [Unknown]
